FAERS Safety Report 23191309 (Version 2)
Quarter: 2023Q4

REPORT INFORMATION
  Report Type: Spontaneous
  Country: US (occurrence: US)
  Receive Date: 20231116
  Receipt Date: 20231121
  Transmission Date: 20240110
  Serious: No
  Sender: FDA-Public Use
  Company Number: US-PFIZER INC-202300360770

PATIENT
  Age: 15 Year
  Sex: Male
  Weight: 53.2 kg

DRUGS (2)
  1. GENOTROPIN [Suspect]
     Active Substance: SOMATROPIN
     Indication: Growth hormone deficiency
     Dosage: 1.6 MG, DAILY
     Dates: start: 2023
  2. DEXAMETHASONE\OFLOXACIN [Concomitant]
     Active Substance: DEXAMETHASONE\OFLOXACIN
     Indication: Attention deficit hyperactivity disorder
     Dosage: 40 MG

REACTIONS (5)
  - Poor quality device used [Unknown]
  - Device leakage [Unknown]
  - Device breakage [Unknown]
  - Product odour abnormal [Unknown]
  - Drug dose omission by device [Unknown]
